FAERS Safety Report 5715029-0 (Version None)
Quarter: 2008Q2

REPORT INFORMATION
  Report Type: 
  Country: None (occurrence: None)
  Receive Date: 20080423
  Receipt Date: 20080418
  Transmission Date: 20081010
  Serious: Yes (Hospitalization, Other)
  Sender: FDA-Public Use
  Company Number: US-BRISTOL-MYERS SQUIBB COMPANY-14156798

PATIENT
  Age: 56 Year
  Sex: Male

DRUGS (9)
  1. REYATAZ [Suspect]
     Indication: HIV INFECTION
     Dates: start: 20071205
  2. NORVIR [Suspect]
     Indication: HIV INFECTION
     Dates: start: 20071205
  3. COMBIVIR [Concomitant]
     Indication: HIV INFECTION
     Dates: start: 20071205
  4. ASPIRIN [Concomitant]
  5. OXYCODONE HCL [Concomitant]
  6. RESTORIL [Concomitant]
  7. VITAMINS [Concomitant]
  8. LESCOL [Concomitant]
  9. METOPROLOL TARTRATE [Concomitant]

REACTIONS (2)
  - HYDRONEPHROSIS [None]
  - NEPHROLITHIASIS [None]
